FAERS Safety Report 11796573 (Version 8)
Quarter: 2018Q1

REPORT INFORMATION
  Report Type: Spontaneous
  Country: US (occurrence: US)
  Receive Date: 20151203
  Receipt Date: 20180328
  Transmission Date: 20180508
  Serious: Yes (Hospitalization, Other)
  Sender: FDA-Public Use
  Company Number: PHEH2015US025090

PATIENT
  Sex: Female

DRUGS (2)
  1. ZOFRAN ODT [Suspect]
     Active Substance: ONDANSETRON HYDROCHLORIDE
     Indication: PRODUCT USED FOR UNKNOWN INDICATION
     Route: 048
  2. ZOFRAN [Suspect]
     Active Substance: ONDANSETRON HYDROCHLORIDE
     Indication: VOMITING IN PREGNANCY
     Dosage: 4 MG, UNK
     Route: 048
     Dates: end: 20070220

REACTIONS (16)
  - Head injury [Unknown]
  - Renal failure [Unknown]
  - Body tinea [Unknown]
  - Anxiety [Unknown]
  - Vaginal haemorrhage [Unknown]
  - Pain [Unknown]
  - Nephrolithiasis [Unknown]
  - Maternal exposure during pregnancy [Unknown]
  - Otosalpingitis [Unknown]
  - Otorrhoea [Unknown]
  - Cerebrovascular accident [Unknown]
  - Metabolic syndrome [Unknown]
  - Dizziness [Unknown]
  - Product use in unapproved indication [Unknown]
  - Hypertension [Unknown]
  - Emotional distress [Unknown]
